APPROVED DRUG PRODUCT: METFORMIN HYDROCHLORIDE
Active Ingredient: METFORMIN HYDROCHLORIDE
Strength: 500MG/5ML
Dosage Form/Route: SOLUTION;ORAL
Application: A215008 | Product #001 | TE Code: AB
Applicant: ANNORA PHARMA PRIVATE LTD
Approved: Mar 13, 2025 | RLD: No | RS: No | Type: RX